FAERS Safety Report 8781021 (Version 1)
Quarter: 2012Q4

REPORT INFORMATION
  Report Type: 
  Country: US (occurrence: US)
  Receive Date: 20120913
  Receipt Date: 20120913
  Transmission Date: 20130627
  Serious: No
  Sender: FDA-Public Use
  Company Number: US-VERTEX PHARMACEUTICAL INC.-AE-2012-008152

PATIENT

DRUGS (5)
  1. INCIVEK [Suspect]
     Indication: HEPATITIS C
     Route: 048
     Dates: start: 20110612, end: 20110903
  2. RIBAVIRIN [Concomitant]
     Indication: HEPATITIS C
     Route: 048
     Dates: start: 20110612, end: 201107
  3. RIBAVIRIN [Concomitant]
     Route: 048
     Dates: start: 201107, end: 20120118
  4. PEGASYS [Concomitant]
     Indication: HEPATITIS C
     Route: 058
     Dates: start: 20110612, end: 201107
  5. PEGASYS [Concomitant]
     Route: 058
     Dates: start: 201107, end: 20120118

REACTIONS (1)
  - Drug ineffective [Unknown]
